FAERS Safety Report 11631831 (Version 1)
Quarter: 2015Q4

REPORT INFORMATION
  Report Type: Spontaneous
  Country: US (occurrence: None)
  Receive Date: 20151013
  Receipt Date: 20151013
  Transmission Date: 20160304
  Serious: Yes (Other)
  Sender: FDA-Public Use
  Company Number: None

PATIENT
  Age: 40 Year
  Sex: Female
  Weight: 88.45 kg

DRUGS (1)
  1. MIRENA [Suspect]
     Active Substance: LEVONORGESTREL
     Dates: start: 20150706, end: 20151007

REACTIONS (12)
  - Depression [None]
  - Tremor [None]
  - Migraine [None]
  - Menorrhagia [None]
  - Breast tenderness [None]
  - Muscle spasms [None]
  - Abdominal distension [None]
  - Fatigue [None]
  - Headache [None]
  - Breast enlargement [None]
  - Libido decreased [None]
  - Weight increased [None]

NARRATIVE: CASE EVENT DATE: 20151007
